FAERS Safety Report 9282119 (Version 1)
Quarter: 2013Q2

REPORT INFORMATION
  Report Type: Spontaneous
  Country: US (occurrence: None)
  Receive Date: 20130508
  Receipt Date: 20130508
  Transmission Date: 20140414
  Serious: Yes (Hospitalization)
  Sender: FDA-Public Use
  Company Number: None

PATIENT
  Age: 81 Year
  Sex: Female
  Weight: 59.9 kg

DRUGS (11)
  1. WARFARIN [Suspect]
     Indication: HEART VALVE REPLACEMENT
  2. ASPIRIN [Concomitant]
  3. FUROSEMIDE [Concomitant]
  4. LEVOTHYROXINE [Concomitant]
  5. METROPROLOL [Concomitant]
  6. PRAVASTATIN [Concomitant]
  7. OXYCODONE [Concomitant]
  8. POTASSIUM CHLORIDE [Concomitant]
  9. SPIRONOLACTONE [Concomitant]
  10. DOCUSATE [Concomitant]
  11. FERROUS SULFATE [Concomitant]

REACTIONS (3)
  - Pericardial haemorrhage [None]
  - Endotracheal intubation complication [None]
  - Post procedural complication [None]
